FAERS Safety Report 6853282-0 (Version None)
Quarter: 2010Q3

REPORT INFORMATION
  Report Type: 
  Country: None (occurrence: None)
  Receive Date: 20100717
  Receipt Date: 20071203
  Transmission Date: 20110219
  Serious: No
  Sender: FDA-Public Use
  Company Number: US-PFIZER INC-2007103459

PATIENT
  Sex: Female
  Weight: 57.7 kg

DRUGS (10)
  1. CHANTIX [Suspect]
     Indication: SMOKING CESSATION THERAPY
     Route: 048
     Dates: start: 20071127
  2. NEXIUM [Concomitant]
  3. OXYCODONE HCL [Concomitant]
  4. PLAVIX [Concomitant]
  5. SIMVASTATIN [Concomitant]
  6. ATENOLOL [Concomitant]
  7. SKELAXIN [Concomitant]
  8. CLONAZEPAM [Concomitant]
  9. HYDROCODONE [Concomitant]
  10. ALL OTHER THERAPEUTIC PRODUCTS [Concomitant]

REACTIONS (1)
  - ABDOMINAL PAIN UPPER [None]
